FAERS Safety Report 8402329-9 (Version None)
Quarter: 2012Q2

REPORT INFORMATION
  Report Type: 
  Country: None (occurrence: None)
  Receive Date: 20120601
  Receipt Date: 20120522
  Transmission Date: 20120825
  Serious: Yes (Death, Hospitalization, Disabling, Other)
  Sender: FDA-Public Use
  Company Number: JP-BRISTOL-MYERS SQUIBB COMPANY-16524704

PATIENT
  Age: 64 Year
  Sex: Male
  Weight: 78 kg

DRUGS (18)
  1. OMEPRAZOLE [Concomitant]
     Dosage: TAB
  2. LYRICA [Concomitant]
     Dates: start: 20110628
  3. CLOBETASOL PROPIONATE [Concomitant]
  4. NERIPROCT [Concomitant]
     Dosage: SUPPOSITORY
     Dates: start: 20111227
  5. PRIMPERAN TAB [Concomitant]
     Dosage: TAB
     Dates: start: 20120413
  6. GAMOFA [Concomitant]
     Dosage: TAB
     Dates: start: 20120412
  7. PACLITAXEL [Suspect]
     Indication: METASTATIC GASTRIC CANCER
     Route: 042
     Dates: start: 20110621, end: 20120321
  8. LIVALO [Concomitant]
     Dosage: TAB
  9. FENTANYL CITRATE [Concomitant]
  10. ALDACTONE [Concomitant]
     Dosage: TAB
     Dates: start: 20120414
  11. ALLEGRA [Concomitant]
     Dosage: TAB
     Dates: start: 20110904
  12. CLOBETASOL PROPIONATE [Concomitant]
     Dosage: LOTION
  13. CAMOSTAT MESYLATE [Concomitant]
     Dates: start: 20120412
  14. MAGLAX [Concomitant]
     Dosage: TAB
  15. OXINORM [Concomitant]
     Dosage: POWDER
  16. ACETAMINOPHEN [Concomitant]
     Dosage: TABLETS
     Dates: start: 20120227
  17. LASIX [Concomitant]
     Dosage: TAB
     Dates: start: 20120409
  18. LAC-B [Concomitant]
     Dosage: POWDER
     Dates: start: 20120419

REACTIONS (4)
  - CEREBRAL INFARCTION [None]
  - PANCREATITIS ACUTE [None]
  - DEEP VEIN THROMBOSIS [None]
  - HEPATIC FAILURE [None]
